FAERS Safety Report 21926718 (Version 1)
Quarter: 2023Q1

REPORT INFORMATION
  Report Type: Spontaneous
  Country: US (occurrence: US)
  Receive Date: 20230130
  Receipt Date: 20230130
  Transmission Date: 20230417
  Serious: Yes (Disabling, Other)
  Sender: FDA-Public Use
  Company Number: US-TEVA-343915USA

PATIENT
  Sex: Female

DRUGS (2)
  1. ALENDRONATE SODIUM [Suspect]
     Active Substance: ALENDRONATE SODIUM
     Indication: Osteoporosis
     Route: 065
  2. FOSAMAX [Suspect]
     Active Substance: ALENDRONATE SODIUM
     Indication: Osteoporosis
     Route: 065

REACTIONS (6)
  - Osteonecrosis of jaw [Unknown]
  - Femur fracture [Unknown]
  - Bone disorder [Unknown]
  - Stress fracture [Unknown]
  - Low turnover osteopathy [Unknown]
  - Jaw disorder [Unknown]
